FAERS Safety Report 12702140 (Version 1)
Quarter: 2016Q3

REPORT INFORMATION
  Report Type: Spontaneous
  Country: US (occurrence: US)
  Receive Date: 20160831
  Receipt Date: 20160831
  Transmission Date: 20161109
  Serious: Yes (Other)
  Sender: FDA-Public Use
  Company Number: US-AMGEN-USASP2016111415

PATIENT
  Sex: Female

DRUGS (3)
  1. NEULASTA [Suspect]
     Active Substance: PEGFILGRASTIM
     Indication: PRODUCT USED FOR UNKNOWN INDICATION
     Dosage: UNK
     Route: 065
  2. DOXORUBICIN [Concomitant]
     Active Substance: DOXORUBICIN
     Dosage: UNK, Q2WK
  3. CYTOXAN [Concomitant]
     Active Substance: CYCLOPHOSPHAMIDE
     Dosage: UNK, Q2WK

REACTIONS (11)
  - Joint swelling [Unknown]
  - Neutrophil count increased [Not Recovered/Not Resolved]
  - Feeling abnormal [Unknown]
  - Haemoglobin abnormal [Unknown]
  - Urinary tract infection [Unknown]
  - Leukocyte vacuolisation [Unknown]
  - Neutrophil toxic granulation present [Unknown]
  - Arthralgia [Unknown]
  - Muscle spasms [Unknown]
  - White blood cell count increased [Not Recovered/Not Resolved]
  - White blood cell morphology abnormal [Unknown]

NARRATIVE: CASE EVENT DATE: 201608
